FAERS Safety Report 17675903 (Version 1)
Quarter: 2020Q2

REPORT INFORMATION
  Report Type: Spontaneous
  Country: JP (occurrence: JP)
  Receive Date: 20200416
  Receipt Date: 20200416
  Transmission Date: 20200714
  Serious: Yes (Other)
  Sender: FDA-Public Use
  Company Number: JP-PFIZER INC-2020146874

PATIENT
  Sex: Male

DRUGS (2)
  1. ESTRACYT [Suspect]
     Active Substance: ESTRAMUSTINE
     Dosage: UNK
     Route: 048
     Dates: start: 20200212
  2. GONAX [Concomitant]
     Active Substance: DEGARELIX
     Dosage: UNK
     Dates: start: 20200212

REACTIONS (2)
  - Polyneuropathy [Unknown]
  - Hypoaesthesia [Unknown]
